FAERS Safety Report 24364677 (Version 1)
Quarter: 2024Q3

REPORT INFORMATION
  Report Type: Spontaneous
  Country: US (occurrence: US)
  Receive Date: 20240926
  Receipt Date: 20240926
  Transmission Date: 20241017
  Serious: No
  Sender: CHATTEM
  Company Number: US-OPELLA-2024OHG032668

PATIENT

DRUGS (5)
  1. FEXOFENADINE [Suspect]
     Active Substance: FEXOFENADINE HYDROCHLORIDE
     Indication: Urticaria
     Dosage: I TAKE 2 IN THE MORNING.
  2. FEXOFENADINE [Suspect]
     Active Substance: FEXOFENADINE HYDROCHLORIDE
     Indication: Inflammation
     Dosage: WHEN IT^S BAD, LIKE IT IS CURRENTLY, I TAKE A FURTHER 2 FEXOFENADINE EARLY EVENING
  3. HYDROXYZINE [Suspect]
     Active Substance: HYDROXYZINE HYDROCHLORIDE
     Indication: Urticaria
     Dosage: 3 HYDROXYZINE AT NIGHT
  4. HYDROXYZINE [Suspect]
     Active Substance: HYDROXYZINE HYDROCHLORIDE
     Indication: Inflammation
     Dosage: I TAKE A FURTHER 2 FEXOFENADINE EARLY EVENING AND 5 HYDROXYZINE.
  5. XOLAIR [Suspect]
     Active Substance: OMALIZUMAB
     Indication: Product used for unknown indication
     Dosage: 300G OMALIZUMAB (XOLAIR) EVERY 4 WEEKS

REACTIONS (2)
  - Fatigue [Unknown]
  - Intentional product misuse [Unknown]
